FAERS Safety Report 8958719 (Version 2)
Quarter: 2012Q4

REPORT INFORMATION
  Report Type: 
  Country: US (occurrence: US)
  Receive Date: 20121212
  Receipt Date: 20121214
  Transmission Date: 20130627
  Serious: No
  Sender: FDA-Public Use
  Company Number: US-TEVA-375315USA

PATIENT
  Age: 65 Year
  Sex: Male

DRUGS (7)
  1. FENTORA [Suspect]
     Indication: OESOPHAGEAL CARCINOMA
     Route: 002
     Dates: start: 2011, end: 20121206
  2. SEROQUEL [Concomitant]
     Indication: SLEEP DISORDER
  3. PERCOCET [Concomitant]
     Indication: PAIN
     Dosage: 10/325 mg
  4. PLAVIX [Concomitant]
  5. CRESTOR [Concomitant]
  6. NEURONTIN [Concomitant]
     Dosage: BID
  7. PROTONIX [Concomitant]

REACTIONS (6)
  - Malaise [Not Recovered/Not Resolved]
  - Abdominal discomfort [Not Recovered/Not Resolved]
  - Diarrhoea [Not Recovered/Not Resolved]
  - Feeling cold [Not Recovered/Not Resolved]
  - Nervousness [Not Recovered/Not Resolved]
  - Pain [Not Recovered/Not Resolved]
